FAERS Safety Report 4929961-9 (Version None)
Quarter: 2006Q1

REPORT INFORMATION
  Report Type: 
  Country: None (occurrence: None)
  Receive Date: 20060127
  Receipt Date: 20051015
  Transmission Date: 20060701
  Serious: Yes (Other)
  Sender: FDA-Public Use
  Company Number: 2005143221

PATIENT
  Age: 45 Year
  Sex: Female
  Weight: 104.3273 kg

DRUGS (8)
  1. LYRICA [Suspect]
     Indication: OEDEMA PERIPHERAL
     Dosage: 150 MG (75 MG 2 IN 1 D)
     Dates: start: 20051014
  2. LYRICA [Suspect]
     Indication: PAIN IN EXTREMITY
     Dosage: 150 MG (75 MG 2 IN 1 D)
     Dates: start: 20051014
  3. SEROQUEL [Concomitant]
  4. MORPHINE (MORHINE) [Concomitant]
  5. OXYCODONE (OXYCODONE) [Concomitant]
  6. CYCLOBENZAPRINE HCL [Concomitant]
  7. EFFEXOR [Concomitant]
  8. WELLBUTRIN [Concomitant]

REACTIONS (7)
  - CHEST PAIN [None]
  - DYSKINESIA [None]
  - DYSPNOEA [None]
  - HYPERHIDROSIS [None]
  - NO THERAPEUTIC RESPONSE [None]
  - RASH PAPULAR [None]
  - SKIN DISCOMFORT [None]
